FAERS Safety Report 10285080 (Version 6)
Quarter: 2014Q4

REPORT INFORMATION
  Report Type: Spontaneous
  Country: US (occurrence: US)
  Receive Date: 20140708
  Receipt Date: 20141224
  Transmission Date: 20150528
  Serious: Yes (Hospitalization, Other)
  Sender: FDA-Public Use
  Company Number: US-PFIZER INC-2014182663

PATIENT
  Age: 75 Year
  Sex: Female
  Weight: 41.72 kg

DRUGS (7)
  1. SUTENT [Suspect]
     Active Substance: SUNITINIB MALATE
     Indication: GASTROINTESTINAL STROMAL TUMOUR
     Dosage: 25 MG, CYCLIC
     Dates: start: 20140619, end: 20140924
  2. PEPCID [Concomitant]
     Active Substance: FAMOTIDINE
     Dosage: UNK
  3. PREDNISONE. [Concomitant]
     Active Substance: PREDNISONE
     Dosage: UNK
  4. SYNTHROID [Concomitant]
     Active Substance: LEVOTHYROXINE SODIUM
     Indication: THYROID DISORDER
     Dosage: UNK
  5. METOPROLOL [Concomitant]
     Active Substance: METOPROLOL
     Dosage: UNK
  6. PRADAXA [Concomitant]
     Active Substance: DABIGATRAN ETEXILATE MESYLATE
     Dosage: UNK
  7. CITRACAL [Concomitant]
     Active Substance: CALCIUM CITRATE
     Dosage: UNK

REACTIONS (28)
  - Atrial fibrillation [Unknown]
  - Alopecia [Unknown]
  - Abdominal pain [Unknown]
  - Erythema [Unknown]
  - Arthralgia [Unknown]
  - Platelet count decreased [Unknown]
  - Pruritus [Unknown]
  - Muscle spasms [Unknown]
  - Joint swelling [Unknown]
  - Gingival swelling [Recovered/Resolved]
  - Upper respiratory tract infection [Unknown]
  - Yellow skin [Unknown]
  - Chills [Unknown]
  - Diarrhoea [Unknown]
  - Weight decreased [Unknown]
  - Mouth ulceration [Unknown]
  - Headache [Recovered/Resolved]
  - Dizziness [Unknown]
  - Palmar-plantar erythrodysaesthesia syndrome [Not Recovered/Not Resolved]
  - Hyperhidrosis [Unknown]
  - Fatigue [Unknown]
  - Dysgeusia [Not Recovered/Not Resolved]
  - Oral disorder [Unknown]
  - Dry skin [Recovering/Resolving]
  - Skin exfoliation [Unknown]
  - Pain in extremity [Unknown]
  - Thyroid disorder [Unknown]
  - Decreased appetite [Unknown]

NARRATIVE: CASE EVENT DATE: 2014
